FAERS Safety Report 9815237 (Version 2)
Quarter: 2015Q3

REPORT INFORMATION
  Report Type: Report from Study
  Country: US (occurrence: US)
  Receive Date: 20140114
  Receipt Date: 20150928
  Transmission Date: 20151125
  Serious: Yes (Other)
  Sender: FDA-Public Use
  Company Number: US-ROCHE-1326948

PATIENT
  Sex: Female

DRUGS (23)
  1. METFORMIN HYDROCHLORIDE. [Concomitant]
     Active Substance: METFORMIN HYDROCHLORIDE
     Route: 065
  2. LUCENTIS [Suspect]
     Active Substance: RANIBIZUMAB
     Indication: DIABETIC RETINAL OEDEMA
     Route: 050
     Dates: start: 20100408
  3. LUCENTIS [Suspect]
     Active Substance: RANIBIZUMAB
     Route: 050
     Dates: start: 20100826
  4. LUCENTIS [Suspect]
     Active Substance: RANIBIZUMAB
     Route: 050
     Dates: start: 20110324
  5. LUCENTIS [Suspect]
     Active Substance: RANIBIZUMAB
     Route: 050
     Dates: start: 20110602
  6. OXYBUTYNIN CHLORIDE. [Concomitant]
     Active Substance: OXYBUTYNIN CHLORIDE
  7. MURO 128 [Concomitant]
     Active Substance: SODIUM CHLORIDE
     Dosage: 5% SOLUTION OU
     Route: 065
  8. AVASTIN [Suspect]
     Active Substance: BEVACIZUMAB
     Indication: PRODUCT USED FOR UNKNOWN INDICATION
     Route: 065
     Dates: start: 20080612
  9. LUCENTIS [Suspect]
     Active Substance: RANIBIZUMAB
     Route: 050
     Dates: start: 20110113
  10. LUCENTIS [Suspect]
     Active Substance: RANIBIZUMAB
     Route: 050
     Dates: start: 20110811
  11. DIPYRIDAMOLE. [Concomitant]
     Active Substance: DIPYRIDAMOLE
  12. PRED FORTE [Concomitant]
     Active Substance: PREDNISOLONE ACETATE
     Dosage: OD
     Route: 065
  13. ACTOS [Concomitant]
     Active Substance: PIOGLITAZONE HYDROCHLORIDE
  14. SIMVASTATIN. [Concomitant]
     Active Substance: SIMVASTATIN
  15. EFFEXOR XR [Concomitant]
     Active Substance: VENLAFAXINE HYDROCHLORIDE
  16. DIOVAN HCT [Concomitant]
     Active Substance: HYDROCHLOROTHIAZIDE\VALSARTAN
  17. GEMFIBROZIL. [Concomitant]
     Active Substance: GEMFIBROZIL
  18. ALPRAZOLAM. [Concomitant]
     Active Substance: ALPRAZOLAM
  19. LUCENTIS [Suspect]
     Active Substance: RANIBIZUMAB
     Route: 050
     Dates: start: 20101114
  20. ALREX [Concomitant]
     Active Substance: LOTEPREDNOL ETABONATE
     Dosage: OU
     Route: 065
  21. LUCENTIS [Suspect]
     Active Substance: RANIBIZUMAB
     Route: 050
     Dates: start: 20100617
  22. ASA [Concomitant]
     Active Substance: ASPIRIN
     Route: 065
  23. OMEPRAZOLE. [Concomitant]
     Active Substance: OMEPRAZOLE

REACTIONS (11)
  - Visual acuity reduced [Unknown]
  - Cystoid macular oedema [Unknown]
  - Deafness [Unknown]
  - Visual impairment [Unknown]
  - Presumed ocular histoplasmosis syndrome [Unknown]
  - Vitreous floaters [Unknown]
  - Subretinal fluid [Unknown]
  - Vision blurred [Unknown]
  - Retinal degeneration [Unknown]
  - Conjunctivitis allergic [Unknown]
  - Dyspnoea [Unknown]
